FAERS Safety Report 7818897-1 (Version None)
Quarter: 2011Q4

REPORT INFORMATION
  Report Type: 
  Country: None (occurrence: None)
  Receive Date: 20111017
  Receipt Date: 20111017
  Transmission Date: 20120403
  Serious: Yes (Hospitalization)
  Sender: FDA-Public Use
  Company Number: None

PATIENT
  Sex: Male
  Weight: 75.2 kg

DRUGS (1)
  1. CISPLATIN [Suspect]
     Dosage: 185 MG
     Dates: end: 20080819

REACTIONS (6)
  - FATIGUE [None]
  - MALAISE [None]
  - INSOMNIA [None]
  - MYALGIA [None]
  - DYSPNOEA [None]
  - PYREXIA [None]
